FAERS Safety Report 17728966 (Version 7)
Quarter: 2021Q4

REPORT INFORMATION
  Report Type: Spontaneous
  Country: US (occurrence: US)
  Receive Date: 20200430
  Receipt Date: 20211009
  Transmission Date: 20220303
  Serious: No
  Sender: FDA-Public Use
  Company Number: US-UNITED THERAPEUTICS-UNT-2020-006526

PATIENT
  Age: 65 Year
  Sex: Female
  Weight: 72.56 kg

DRUGS (25)
  1. TYVASO [Suspect]
     Active Substance: TREPROSTINIL
     Indication: Pulmonary arterial hypertension
     Dosage: 18 ?G, TID
     Dates: start: 20200421
  2. TYVASO [Suspect]
     Active Substance: TREPROSTINIL
     Dosage: 18-54 ?G, QID
     Dates: start: 202004
  3. TYVASO [Suspect]
     Active Substance: TREPROSTINIL
     Dosage: UNK
  4. TYVASO [Suspect]
     Active Substance: TREPROSTINIL
     Dosage: UNK
  5. TYVASO [Suspect]
     Active Substance: TREPROSTINIL
     Dosage: UNK
  6. TYVASO [Suspect]
     Active Substance: TREPROSTINIL
     Dosage: 18 ?G, (TRIED IN THE AM)
     Dates: start: 20200425
  7. TYVASO [Suspect]
     Active Substance: TREPROSTINIL
     Dosage: 6 ?G, QD
     Dates: start: 2020
  8. TYVASO [Suspect]
     Active Substance: TREPROSTINIL
     Dosage: 12 ?G, QD
     Dates: start: 20200426
  9. TYVASO [Suspect]
     Active Substance: TREPROSTINIL
     Dosage: 18 ?G, QID
     Dates: start: 2020, end: 202007
  10. TYVASO [Suspect]
     Active Substance: TREPROSTINIL
     Dosage: 24 ?G
     Dates: start: 2020
  11. TYVASO [Suspect]
     Active Substance: TREPROSTINIL
     Dosage: 30 ?G
     Dates: start: 2020
  12. TADALAFIL [Suspect]
     Active Substance: TADALAFIL
     Indication: Product used for unknown indication
     Dosage: UNK
     Route: 065
     Dates: end: 2020
  13. SILDENAFIL [Suspect]
     Active Substance: SILDENAFIL
     Indication: Product used for unknown indication
     Dosage: UNK
     Route: 065
  14. SILDENAFIL [Suspect]
     Active Substance: SILDENAFIL
     Dosage: 10 MG (HALF DOSE)
     Route: 065
     Dates: start: 202009, end: 2020
  15. AMBRISENTAN [Suspect]
     Active Substance: AMBRISENTAN
     Indication: Product used for unknown indication
     Dosage: UNK
     Route: 065
  16. ASPIRIN [Concomitant]
     Active Substance: ASPIRIN
     Indication: Product used for unknown indication
     Dosage: 81 MG, QD
     Route: 048
  17. COREG [Concomitant]
     Active Substance: CARVEDILOL
     Indication: Product used for unknown indication
     Dosage: 25 MG, BID (WITH MEALS)
     Route: 048
  18. FERROUS SULFATE [Concomitant]
     Active Substance: FERROUS SULFATE
     Indication: Product used for unknown indication
     Dosage: 65 MG, QD (WITH BREAKFAST)
     Route: 048
  19. KLOR-CON M20 [Concomitant]
     Active Substance: POTASSIUM CHLORIDE
     Indication: Product used for unknown indication
     Dosage: 20 MEQ, PRN, (TAKE ONE TABLET BY MOUTH ONCE DAILY AS NEEDED ONLY WHEN TAKING TORSEMIDE)
     Route: 048
  20. LEVEMIR [Concomitant]
     Active Substance: INSULIN DETEMIR
     Indication: Product used for unknown indication
     Dosage: INJECT 75 UNITS UNDER THE SKIN NIGHTLY (VIA INSULIN PEN)
     Route: 058
  21. PRINIVIL [Concomitant]
     Active Substance: LISINOPRIL
     Indication: Product used for unknown indication
     Dosage: 20 MG, BID
     Route: 048
  22. ZESTRIL [Concomitant]
     Active Substance: LISINOPRIL
     Indication: Product used for unknown indication
     Dosage: 20 MG, BID
     Route: 048
  23. CRESTOR [Concomitant]
     Active Substance: ROSUVASTATIN CALCIUM
     Indication: Product used for unknown indication
     Dosage: 10 MG (NIGHTLY)
     Route: 048
  24. DEMADEX [Concomitant]
     Active Substance: TORSEMIDE
     Indication: Product used for unknown indication
     Dosage: 20 MG, QD
     Route: 048
  25. IRON [Concomitant]
     Active Substance: IRON
     Indication: Iron deficiency anaemia
     Dosage: UNK
     Route: 048

REACTIONS (25)
  - Ascites [Unknown]
  - Headache [Unknown]
  - Diarrhoea [Unknown]
  - Throat irritation [Not Recovered/Not Resolved]
  - Dyspnoea [Not Recovered/Not Resolved]
  - Nasal discomfort [Recovering/Resolving]
  - Feeling abnormal [Unknown]
  - Eye pain [Unknown]
  - Fatigue [Recovering/Resolving]
  - Abdominal distension [Recovering/Resolving]
  - Drug intolerance [Unknown]
  - Oropharyngeal pain [Unknown]
  - Chest pain [Unknown]
  - Dysphonia [Unknown]
  - Vision blurred [Unknown]
  - Oedema peripheral [Unknown]
  - Seasonal allergy [Unknown]
  - Dry mouth [Unknown]
  - Insomnia [Unknown]
  - Oropharyngeal discomfort [Not Recovered/Not Resolved]
  - Jugular vein distension [Unknown]
  - Respiratory disorder [Unknown]
  - Blood pressure decreased [Unknown]
  - Therapy cessation [Unknown]
  - Off label use [Unknown]

NARRATIVE: CASE EVENT DATE: 20200101
